FAERS Safety Report 14995222 (Version 2)
Quarter: 2018Q2

REPORT INFORMATION
  Report Type: Spontaneous
  Country: FR (occurrence: FR)
  Receive Date: 20180611
  Receipt Date: 20180628
  Transmission Date: 20180711
  Serious: Yes (Life-Threatening, Other)
  Sender: FDA-Public Use
  Company Number: FR-PFIZER INC-2018233695

PATIENT
  Age: 47 Year
  Sex: Male

DRUGS (7)
  1. OXALIPLATIN. [Suspect]
     Active Substance: OXALIPLATIN
     Indication: ADENOCARCINOMA OF COLON
     Dosage: UNK, CYCLIC, (AFTER SIX INFUSIONS, TOTAL DOSE 680 MG/M2, 12 PLANNED CYCLES OF CHEMOTHERAPY)
  2. 5-FLUOROURACIL [Concomitant]
     Active Substance: FLUOROURACIL
     Dosage: 784 MG, UNK, (INFUSION)
     Route: 042
  3. 5-FLUOROURACIL [Concomitant]
     Active Substance: FLUOROURACIL
     Indication: ADENOCARCINOMA OF COLON
     Dosage: UNK, CYCLIC (12 PLANNED CYCLES OF CHEMOTHERAPY)
  4. FOLINIC ACID [Concomitant]
     Active Substance: LEUCOVORIN
     Indication: ADENOCARCINOMA OF COLON
     Dosage: UNK, CYCLIC (12 PLANNED CYCLES OF CHEMOTHERAPY)
  5. CPT-11 [Concomitant]
     Active Substance: IRINOTECAN
     Indication: ADENOCARCINOMA OF COLON
     Dosage: 392 MG, UNK, (AT 42.5 DEGREE C DURING 30 MINUTES)
     Route: 033
  6. OXALIPLATIN. [Suspect]
     Active Substance: OXALIPLATIN
     Dosage: 588 MG, UNK
     Route: 033
  7. FOLINIC ACID [Concomitant]
     Active Substance: LEUCOVORIN
     Dosage: 39 MG, UNK (INFUSION, DURING 1 HOUR WAS PERFORMED)
     Route: 042

REACTIONS (2)
  - Trismus [Unknown]
  - Organising pneumonia [Recovered/Resolved]
